FAERS Safety Report 8593501-6 (Version None)
Quarter: 2012Q3

REPORT INFORMATION
  Report Type: 
  Country: None (occurrence: None)
  Receive Date: 20120814
  Receipt Date: 20120629
  Transmission Date: 20120928
  Serious: No
  Sender: FDA-Public Use
  Company Number: US-ASTRAZENECA-2012SE44485

PATIENT
  Age: 61 Year
  Sex: Female
  Weight: 54.4 kg

DRUGS (15)
  1. NEXIUM [Suspect]
     Indication: GASTROOESOPHAGEAL REFLUX DISEASE
     Route: 048
     Dates: start: 20070101
  2. PRILOSEC [Suspect]
     Indication: GASTROOESOPHAGEAL REFLUX DISEASE
     Route: 048
  3. VITAMIN B-12 [Concomitant]
  4. MECLIZINE [Concomitant]
  5. PREMARIN [Concomitant]
  6. ZOLOFT [Concomitant]
  7. UROSTAT [Concomitant]
  8. CALCIUM CARBONATE [Concomitant]
  9. CARDIAZEM [Concomitant]
  10. PRINIVIL [Concomitant]
  11. NEXIUM [Suspect]
     Route: 048
  12. TEKTURNA [Concomitant]
  13. ATIVAN [Concomitant]
  14. LIPITOR [Concomitant]
  15. VITAMIN D [Concomitant]

REACTIONS (4)
  - DRUG INEFFECTIVE [None]
  - CONDITION AGGRAVATED [None]
  - OFF LABEL USE [None]
  - INTENTIONAL DRUG MISUSE [None]
